FAERS Safety Report 21624451 (Version 1)
Quarter: 2022Q4

REPORT INFORMATION
  Report Type: Report from Study
  Country: IL (occurrence: IL)
  Receive Date: 20221121
  Receipt Date: 20221121
  Transmission Date: 20230113
  Serious: Yes (Hospitalization)
  Sender: FDA-Public Use
  Company Number: IL-ABBVIE-4207763

PATIENT
  Sex: Female

DRUGS (2)
  1. CARBIDOPA\LEVODOPA [Suspect]
     Active Substance: CARBIDOPA\LEVODOPA
     Indication: Parkinson^s disease
     Route: 050
     Dates: start: 20211121
  2. CARBIDOPA\LEVODOPA [Suspect]
     Active Substance: CARBIDOPA\LEVODOPA
     Dosage: CONTINUOUS DOSAGE (ML/H) 4.5
     Route: 050

REACTIONS (2)
  - Condition aggravated [Unknown]
  - Device use issue [Unknown]
